FAERS Safety Report 12618605 (Version 1)
Quarter: 2016Q3

REPORT INFORMATION
  Report Type: Spontaneous
  Country: US (occurrence: US)
  Receive Date: 20160803
  Receipt Date: 20160803
  Transmission Date: 20161109
  Serious: No
  Sender: FDA-Public Use
  Company Number: US-ALLERGAN-1647794

PATIENT

DRUGS (1)
  1. MORPHINE SULFATE UNK [Suspect]
     Active Substance: MORPHINE SULFATE
     Indication: PRODUCT USED FOR UNKNOWN INDICATION
     Dosage: UNK, UNKNOWN
     Route: 065

REACTIONS (10)
  - Agitation [Unknown]
  - Psychomotor hyperactivity [Unknown]
  - Thinking abnormal [Unknown]
  - Logorrhoea [Unknown]
  - Feeling abnormal [Unknown]
  - Pruritus generalised [Unknown]
  - Dyspnoea [Unknown]
  - Hiccups [Unknown]
  - Rash [Unknown]
  - Product substitution issue [Unknown]
